FAERS Safety Report 5423994-4 (Version None)
Quarter: 2007Q3

REPORT INFORMATION
  Report Type: 
  Country: None (occurrence: None)
  Receive Date: 20070823
  Receipt Date: 20070813
  Transmission Date: 20080115
  Serious: Yes (Hospitalization)
  Sender: FDA-Public Use
  Company Number: JP-SANOFI-SYNTHELABO-F01200700950

PATIENT
  Sex: Female
  Weight: 51.8 kg

DRUGS (29)
  1. ASCORBIC ACID [Concomitant]
     Dosage: 500 MG/ 2ML
  2. NEOLAMIN [Concomitant]
     Dosage: 1 AMPULE
  3. ADETPHOS [Concomitant]
     Dosage: 40 MG
  4. ADELAVIN [Concomitant]
     Dosage: 2 ML
  5. SOLITA [Concomitant]
     Dosage: 200 ML
  6. MAXALT [Concomitant]
  7. KAMI-SHOYO-SAN [Concomitant]
     Dosage: 5 G
  8. KEISHI-BUKURYO-GAN-YOKUININ [Concomitant]
     Dosage: 5 G
  9. JI-DABOKU-IPPO [Concomitant]
     Dosage: 5 G
  10. VASOLATOR [Concomitant]
     Dosage: 27 MG
  11. PL [Concomitant]
  12. SG [Concomitant]
  13. CONIEL [Concomitant]
     Dosage: 4 MG
  14. LIVALO [Concomitant]
     Dosage: 1 MG
  15. RIZE [Concomitant]
     Dosage: 5 MG
  16. ROHYPNOL [Concomitant]
     Dosage: 1 MG
  17. VITANEURIN [Concomitant]
     Dosage: 100 MG
  18. HEAVY MAGNESIUM OXIDE [Concomitant]
     Dosage: 1.5 G
  19. MUCOSTA [Concomitant]
     Dosage: 300 MG
  20. OPALMON [Concomitant]
     Dosage: 15 MCG
  21. ACTONEL [Concomitant]
  22. AMARYL [Concomitant]
     Dosage: 0.5 MG
     Route: 048
  23. CELECOX [Concomitant]
     Dosage: 100 MG
  24. LANSOPRAZOLE [Concomitant]
     Dosage: 30 MG
  25. ALDACTONE [Concomitant]
     Dosage: 25 MG
  26. METOPROLOL TARTRATE [Concomitant]
     Dosage: 20 MG
  27. TRICHLORMETHIAZIDE [Concomitant]
     Dosage: 2 MG
  28. CANDESARTAN CILEXETIL [Concomitant]
     Dosage: 12 MG
  29. CLOPIDOGREL [Suspect]
     Indication: LACUNAR INFARCTION
     Dosage: 75 MG
     Route: 048
     Dates: start: 20070712, end: 20070725

REACTIONS (2)
  - HYPOCHLORAEMIA [None]
  - HYPONATRAEMIA [None]
